FAERS Safety Report 10747239 (Version 3)
Quarter: 2015Q1

REPORT INFORMATION
  Report Type: Spontaneous
  Country: BE (occurrence: BE)
  Receive Date: 20150129
  Receipt Date: 20150327
  Transmission Date: 20150721
  Serious: Yes (Other)
  Sender: FDA-Public Use
  Company Number: BE-AMGEN-BELSP2015007172

PATIENT
  Age: 70 Year
  Sex: Male

DRUGS (1)
  1. XGEVA [Suspect]
     Active Substance: DENOSUMAB
     Indication: PRODUCT USED FOR UNKNOWN INDICATION
     Dosage: 120 MG, Q4WK
     Route: 058
     Dates: start: 201212, end: 20150122

REACTIONS (4)
  - Tooth extraction [None]
  - Tooth disorder [Unknown]
  - Osteonecrosis of jaw [Recovered/Resolved]
  - Osteitis [Unknown]

NARRATIVE: CASE EVENT DATE: 20140623
